FAERS Safety Report 13118946 (Version 1)
Quarter: 2017Q1

REPORT INFORMATION
  Report Type: Spontaneous
  Country: US (occurrence: US)
  Receive Date: 20170116
  Receipt Date: 20170116
  Transmission Date: 20170428
  Serious: No
  Sender: FDA-Public Use
  Company Number: US-SA-2016SA231202

PATIENT
  Age: 42 Year
  Sex: Male

DRUGS (1)
  1. THYMOGLOBULIN [Suspect]
     Active Substance: LAPINE T-LYMPHOCYTE IMMUNE GLOBULIN
     Indication: BONE MARROW CONDITIONING REGIMEN
     Route: 042
     Dates: start: 201612, end: 201612

REACTIONS (5)
  - Hypersensitivity [Unknown]
  - Hypotension [Unknown]
  - Pruritus [Unknown]
  - Hypertension [Unknown]
  - Urticaria [Unknown]

NARRATIVE: CASE EVENT DATE: 201612
